FAERS Safety Report 16123434 (Version 2)
Quarter: 2019Q3

REPORT INFORMATION
  Report Type: Spontaneous
  Country: JP (occurrence: JP)
  Receive Date: 20190327
  Receipt Date: 20190909
  Transmission Date: 20191004
  Serious: Yes (Other)
  Sender: FDA-Public Use
  Company Number: JP-EISAI MEDICAL RESEARCH-EC-2019-053919

PATIENT
  Age: 76 Year
  Sex: Male

DRUGS (2)
  1. LENVIMA [Suspect]
     Active Substance: LENVATINIB
     Route: 048
     Dates: start: 20180319, end: 20180522
  2. LENVIMA [Suspect]
     Active Substance: LENVATINIB
     Indication: THYROID CANCER
     Route: 048
     Dates: start: 20180115, end: 20180318

REACTIONS (3)
  - Ejection fraction decreased [Recovered/Resolved]
  - Decreased appetite [Unknown]
  - Proteinuria [Unknown]

NARRATIVE: CASE EVENT DATE: 20180319
